FAERS Safety Report 22250489 (Version 1)
Quarter: 2023Q2

REPORT INFORMATION
  Report Type: Spontaneous
  Country: US (occurrence: None)
  Receive Date: 20230424
  Receipt Date: 20230424
  Transmission Date: 20230721
  Serious: Yes (Disabling)
  Sender: FDA-Public Use
  Company Number: None

PATIENT
  Age: 54 Year
  Sex: Female
  Weight: 85.5 kg

DRUGS (11)
  1. OZEMPIC [Suspect]
     Active Substance: SEMAGLUTIDE
     Indication: Diabetes mellitus
     Dosage: 1 INJECTION ONCE A WEEK INJECTED INTO ABDOMINAL ?
     Route: 050
     Dates: start: 20230226
  2. DIOVAN HCT [Concomitant]
     Active Substance: HYDROCHLOROTHIAZIDE\VALSARTAN
  3. MOBIC [Concomitant]
     Active Substance: MELOXICAM
  4. ZETIA [Concomitant]
     Active Substance: EZETIMIBE
  5. POTASSIUM [Concomitant]
     Active Substance: POTASSIUM
  6. ALBUTEROL [Concomitant]
     Active Substance: ALBUTEROL
  7. METFORMIN [Concomitant]
     Active Substance: METFORMIN HYDROCHLORIDE
  8. folitab 500 [Concomitant]
  9. HERBALS\WITHANIA SOMNIFERA ROOT [Concomitant]
     Active Substance: HERBALS\WITHANIA SOMNIFERA ROOT
  10. OMEGA-3 ACIDS [Concomitant]
     Active Substance: OMEGA-3 FATTY ACIDS
  11. HERBALS\TURMERIC [Concomitant]
     Active Substance: HERBALS\TURMERIC

REACTIONS (7)
  - Therapy change [None]
  - Thirst [None]
  - Arthritis [None]
  - Cardiac discomfort [None]
  - Pain in extremity [None]
  - Paraesthesia [None]
  - Unevaluable event [None]

NARRATIVE: CASE EVENT DATE: 20230419
